FAERS Safety Report 8742232 (Version 3)
Quarter: 2012Q4

REPORT INFORMATION
  Report Type: 
  Country: AU (occurrence: AU)
  Receive Date: 20120824
  Receipt Date: 20121010
  Transmission Date: 20130627
  Serious: Yes (Other)
  Sender: FDA-Public Use
  Company Number: PHHY2012AU072898

PATIENT
  Age: 68 Year
  Sex: Female

DRUGS (9)
  1. ACLASTA [Suspect]
     Dosage: 5 mg, UNK
     Route: 042
     Dates: start: 20090629
  2. ACLASTA [Suspect]
     Dosage: 5 mg, UNK
     Route: 042
     Dates: start: 20100608
  3. ACLASTA [Suspect]
     Dosage: 5 mg, UNK
     Route: 042
     Dates: start: 20110719
  4. VITAMINS NOS [Concomitant]
  5. CALCIUM [Concomitant]
     Dosage: 2 DF, daily
     Route: 048
  6. VITAMIN D [Concomitant]
     Dosage: 2 DF, daily
     Route: 048
  7. LIPITOR [Concomitant]
     Indication: HYPERCHOLESTEROLAEMIA
     Dosage: 20 mg,
     Route: 048
     Dates: start: 20070828
  8. VITAMIN C [Concomitant]
  9. FLUOXETINE [Concomitant]

REACTIONS (4)
  - Gingival abscess [Recovered/Resolved with Sequelae]
  - Teeth brittle [Unknown]
  - Gingival disorder [Unknown]
  - Tooth loss [Unknown]
